FAERS Safety Report 9346667 (Version 7)
Quarter: 2014Q1

REPORT INFORMATION
  Report Type: Report from Study
  Country: DE (occurrence: DE)
  Receive Date: 20130613
  Receipt Date: 20140204
  Transmission Date: 20141002
  Serious: Yes (Life-Threatening, Hospitalization, Disabling)
  Sender: FDA-Public Use
  Company Number: DE-CELGENEUS-062-C4047-13044752

PATIENT
  Age: 81 Year
  Sex: Male
  Weight: 57 kg

DRUGS (33)
  1. CC-4047 [Suspect]
     Indication: PLASMA CELL MYELOMA
     Dosage: 4 MILLIGRAM
     Route: 048
     Dates: start: 20130412, end: 20130424
  2. CC-4047 [Suspect]
     Dosage: 3 MILLIGRAM
     Route: 048
     Dates: start: 20130508, end: 20130529
  3. DEXAMETHASONE [Suspect]
     Indication: PLASMA CELL MYELOMA
     Dosage: 20 MILLIGRAM
     Route: 065
     Dates: start: 20130412, end: 20130419
  4. DEXAMETHASONE [Suspect]
     Dosage: 20 MILLIGRAM
     Route: 065
     Dates: start: 20130508, end: 20130529
  5. ASA [Concomitant]
     Indication: THROMBOSIS PROPHYLAXIS
     Dosage: 100 MILLIGRAM
     Route: 048
     Dates: start: 20130412
  6. ACIC [Concomitant]
     Indication: PRODUCT USED FOR UNKNOWN INDICATION
     Dosage: 800 MILLIGRAM
     Route: 048
     Dates: start: 20130412
  7. PANTOZOL [Concomitant]
     Indication: PROPHYLAXIS AGAINST GASTROINTESTINAL ULCER
     Dosage: 40 MILLIGRAM
     Route: 048
     Dates: start: 20130412
  8. DUROGESIC [Concomitant]
     Indication: PAIN
     Dosage: 25 MICROGRAM
     Route: 062
     Dates: start: 20130412
  9. MST [Concomitant]
     Indication: PAIN
     Dosage: 40 MILLIGRAM
     Route: 065
  10. NOVALGIN [Concomitant]
     Indication: PRODUCT USED FOR UNKNOWN INDICATION
     Dosage: PRN
     Route: 048
  11. CONCOR [Concomitant]
     Indication: PRODUCT USED FOR UNKNOWN INDICATION
     Dosage: 5 MILLIGRAM
     Route: 048
     Dates: start: 20130412
  12. AMLODIPINE [Concomitant]
     Indication: PRODUCT USED FOR UNKNOWN INDICATION
     Route: 065
  13. L THYROXIN [Concomitant]
     Indication: HYPOTHYROIDISM
     Dosage: 25 MICROGRAM
     Route: 048
     Dates: start: 20130412
  14. PAMIDRONATE [Concomitant]
     Indication: OSTEOLYSIS
     Dosage: 60 MILLIGRAM
     Route: 041
     Dates: start: 20130319
  15. PAMIDRONATE [Concomitant]
     Route: 065
     Dates: start: 20121122
  16. PAMIDRONATE [Concomitant]
     Dosage: 60 MILLIGRAM
     Route: 041
     Dates: start: 20130223
  17. NEULASTA [Concomitant]
     Indication: NEUTROPENIA
     Dosage: 6 MILLIGRAM
     Route: 058
     Dates: start: 20130412, end: 20130412
  18. MCP [Concomitant]
     Indication: PRODUCT USED FOR UNKNOWN INDICATION
     Dosage: 80 DROPS
     Route: 048
  19. ARANESP [Concomitant]
     Indication: ANAEMIA
     Dosage: 130 MICROGRAM
     Route: 058
     Dates: start: 20130522, end: 20130612
  20. ACICLOVIR [Concomitant]
     Indication: INFECTION PROPHYLAXIS
     Dosage: 800 MILLIGRAM
     Route: 048
     Dates: start: 20130412
  21. FENTANYL [Concomitant]
     Indication: BACK PAIN
     Dosage: 75 MICROGRAM
     Route: 062
     Dates: start: 20130412
  22. FENTANYL [Concomitant]
     Indication: SPINAL PAIN
     Route: 065
  23. SMOFKABIVEN [Concomitant]
     Indication: NUTRITIONAL SUPPLEMENTATION
     Dosage: KCAL
     Route: 041
     Dates: start: 20130624
  24. SMOFKABIVEN [Concomitant]
     Indication: GENERAL PHYSICAL HEALTH DETERIORATION
     Route: 065
  25. MORPHINE SULPHATE [Concomitant]
     Indication: BACK PAIN
     Route: 048
     Dates: start: 20130319
  26. MORPHINE SULPHATE [Concomitant]
     Indication: SPINAL PAIN
     Route: 065
  27. METAMIZOLE [Concomitant]
     Indication: PAIN
     Route: 048
     Dates: start: 20130319
  28. BISOPROLOL FUMERATE [Concomitant]
     Indication: HYPERTENSION
     Dosage: 5 MILLIGRAM
     Route: 048
     Dates: start: 20130412
  29. LEVOFLOXACIN [Concomitant]
     Indication: PAIN IN EXTREMITY
     Route: 065
     Dates: start: 201303
  30. HYDROMORPHONE [Concomitant]
     Indication: PAIN
     Dosage: 16 MILLIGRAM
     Route: 048
     Dates: start: 20130624
  31. MORPHINE [Concomitant]
     Indication: PAIN
     Dosage: 5 MILLIGRAM
     Route: 058
     Dates: start: 20130624
  32. ATROVENT [Concomitant]
     Indication: DYSPNOEA
     Route: 055
     Dates: start: 20130624
  33. LACTULOSE [Concomitant]
     Indication: CONSTIPATION
     Route: 048
     Dates: start: 201304, end: 20130412

REACTIONS (4)
  - Pancytopenia [Recovered/Resolved]
  - Febrile neutropenia [Recovered/Resolved]
  - Abdominal infection [Unknown]
  - Renal failure acute [Unknown]
